FAERS Safety Report 5214464-7 (Version None)
Quarter: 2007Q1

REPORT INFORMATION
  Report Type: 
  Country: None (occurrence: None)
  Receive Date: 20061107
  Receipt Date: 20060724
  Transmission Date: 20070707
  Serious: No
  Sender: FDA-Public Use
  Company Number: 200614763BWH

PATIENT
  Age: 35 Year
  Sex: Male
  Weight: 86.1834 kg

DRUGS (1)
  1. LEVITRA [Suspect]
     Indication: ERECTILE DYSFUNCTION
     Dosage: 15 MG, PRN, ORAL
     Route: 048
     Dates: start: 20060601

REACTIONS (1)
  - ERECTION INCREASED [None]
